FAERS Safety Report 14590524 (Version 2)
Quarter: 2018Q1

REPORT INFORMATION
  Report Type: Spontaneous
  Country: ES (occurrence: ES)
  Receive Date: 20180302
  Receipt Date: 20180313
  Transmission Date: 20180509
  Serious: Yes (Life-Threatening, Hospitalization, Other)
  Sender: FDA-Public Use
  Company Number: ES-AMGEN-ESPSP2018027521

PATIENT
  Age: 74 Year
  Sex: Female
  Weight: 99 kg

DRUGS (3)
  1. FENTANILO [Concomitant]
     Active Substance: FENTANYL
     Dosage: 75 MG, EVERY 72 HOURS
     Dates: start: 20160912, end: 20170519
  2. REPATHA [Suspect]
     Active Substance: EVOLOCUMAB
     Indication: HYPERCHOLESTEROLAEMIA
     Dosage: 140 MG, Q2WK
     Route: 058
     Dates: start: 201601, end: 20170508
  3. CITALOPRAM [Concomitant]
     Active Substance: CITALOPRAM HYDROBROMIDE
     Dosage: 20 MG, QD
     Dates: start: 20160930

REACTIONS (9)
  - Pneumonia aspiration [Recovered/Resolved]
  - Loss of consciousness [Recovered/Resolved]
  - Dyspnoea [Unknown]
  - Sleep apnoea syndrome [Unknown]
  - Application site pruritus [Unknown]
  - Vomiting [Unknown]
  - Renal failure [Recovered/Resolved]
  - Cyanosis [Unknown]
  - Application site erythema [Unknown]

NARRATIVE: CASE EVENT DATE: 2017
